FAERS Safety Report 9074318 (Version 1)
Quarter: 2013Q1

REPORT INFORMATION
  Report Type: Spontaneous
  Country: US (occurrence: US)
  Receive Date: 20130129
  Receipt Date: 20130129
  Transmission Date: 20140127
  Serious: No
  Sender: FDA-Public Use
  Company Number: US-ABBOTT-12P-163-0927226-00

PATIENT
  Sex: Female
  Weight: 45.4 kg

DRUGS (10)
  1. HUMIRA 40 MG/0.8 ML PEN [Suspect]
     Indication: RHEUMATOID ARTHRITIS
     Route: 058
     Dates: start: 2006, end: 2009
  2. HUMIRA 40 MG/0.8 ML PEN [Suspect]
     Route: 058
     Dates: start: 2009
  3. PRILOSEC [Concomitant]
     Indication: GASTRIC DISORDER
  4. FOLIC ACID [Concomitant]
     Indication: RHEUMATOID ARTHRITIS
  5. ARAVA [Concomitant]
     Indication: RHEUMATOID ARTHRITIS
  6. ATENOLOL [Concomitant]
     Indication: CARDIAC DISORDER
  7. METOCLOPRAMIDE [Concomitant]
     Indication: GASTRIC DISORDER
  8. LEVOTHYROXINE [Concomitant]
     Indication: THYROID DISORDER
  9. TRICOR [Concomitant]
     Indication: BLOOD CHOLESTEROL INCREASED
  10. VICODIN [Concomitant]
     Indication: PAIN

REACTIONS (2)
  - Rheumatoid arthritis [Recovering/Resolving]
  - Arthralgia [Recovered/Resolved]
